FAERS Safety Report 9620231 (Version 1)
Quarter: 2013Q4

REPORT INFORMATION
  Report Type: Spontaneous
  Country: US (occurrence: US)
  Receive Date: 20131014
  Receipt Date: 20131014
  Transmission Date: 20140711
  Serious: No
  Sender: FDA-Public Use
  Company Number: US-ALLERGAN-1312068US

PATIENT
  Age: 59 Year
  Sex: Female

DRUGS (2)
  1. ALPHAGAN P [Suspect]
     Indication: OCULAR HYPERTENSION
     Dosage: 2 GTT, BID
     Route: 047
     Dates: end: 20130808
  2. DIOVAN [Concomitant]
     Indication: HYPERTENSION

REACTIONS (5)
  - Blood pressure increased [Unknown]
  - Musculoskeletal disorder [Unknown]
  - Nervousness [Unknown]
  - Back disorder [Unknown]
  - Inappropriate schedule of drug administration [Unknown]
